FAERS Safety Report 6646204-9 (Version None)
Quarter: 2010Q1

REPORT INFORMATION
  Report Type: 
  Country: None (occurrence: None)
  Receive Date: 20100323
  Receipt Date: 20100312
  Transmission Date: 20100710
  Serious: Yes (Hospitalization)
  Sender: FDA-Public Use
  Company Number: FR-ROCHE-688716

PATIENT
  Sex: Female

DRUGS (4)
  1. BONIVA [Suspect]
     Indication: OSTEOPOROSIS
     Route: 048
     Dates: start: 20060101, end: 20091114
  2. FOSAMAX [Suspect]
     Indication: OSTEOPOROSIS
     Route: 065
     Dates: start: 20020101, end: 20060101
  3. PIASCLEDINE [Concomitant]
  4. CACIT D3 [Concomitant]
     Indication: OSTEOPOROSIS
     Dosage: DRUG: CACIT VITAMINE D3
     Dates: start: 20020101

REACTIONS (2)
  - FEMUR FRACTURE [None]
  - SCIATICA [None]
